FAERS Safety Report 7437610-3 (Version None)
Quarter: 2011Q2

REPORT INFORMATION
  Report Type: 
  Country: None (occurrence: None)
  Receive Date: 20110426
  Receipt Date: 20110419
  Transmission Date: 20111010
  Serious: Yes (Other)
  Sender: FDA-Public Use
  Company Number: CA-ABBOTT-11P-028-0720488-00

PATIENT
  Sex: Male
  Weight: 53.572 kg

DRUGS (14)
  1. HUMIRA [Suspect]
     Indication: RHEUMATOID ARTHRITIS
     Route: 058
     Dates: start: 20050929, end: 20100601
  2. PREDNISONE [Concomitant]
     Indication: ARTHRITIS
     Route: 048
  3. APO-AMIODARONE [Concomitant]
     Indication: PRODUCT USED FOR UNKNOWN INDICATION
     Route: 048
  4. SYNTHROID [Concomitant]
     Indication: THYROID DISORDER
     Route: 048
  5. CRESTOR [Concomitant]
     Indication: PROPHYLAXIS
  6. CALCIUM [Concomitant]
     Indication: MINERAL SUPPLEMENTATION
     Route: 048
  7. PAIN MEDICATION UNKNOWN [Concomitant]
     Indication: PAIN
     Dosage: Q 4 HOURS
     Route: 048
     Dates: start: 20101001
  8. APO-ISMN [Concomitant]
     Indication: PROPHYLAXIS
  9. FLOMAX [Concomitant]
     Indication: DYSURIA
     Route: 048
     Dates: start: 20100101
  10. PREVACID [Concomitant]
     Indication: GASTROOESOPHAGEAL REFLUX DISEASE
     Route: 048
  11. CRESTOR [Concomitant]
     Indication: BLOOD CHOLESTEROL INCREASED
     Route: 048
     Dates: start: 20060101
  12. METOPROLOL SUCCINATE [Concomitant]
     Indication: CORONARY ARTERY OCCLUSION
     Route: 048
     Dates: start: 20100801
  13. PAIN MEDICATION UNKNOWN [Concomitant]
     Indication: FALL
  14. APO-ISMN [Concomitant]
     Indication: ANGINA PECTORIS
     Dosage: QD
     Route: 048

REACTIONS (3)
  - BLOOD IRON DECREASED [None]
  - JOINT DISLOCATION [None]
  - UPPER LIMB FRACTURE [None]
